FAERS Safety Report 6770677-4 (Version None)
Quarter: 2010Q2

REPORT INFORMATION
  Report Type: 
  Country: None (occurrence: None)
  Receive Date: 20100615
  Receipt Date: 20100608
  Transmission Date: 20101027
  Serious: Yes (Hospitalization, Other)
  Sender: FDA-Public Use
  Company Number: MX-ABBOTT-10P-107-0649652-00

PATIENT
  Age: 49 Year
  Sex: Female
  Weight: 77 kg

DRUGS (1)
  1. HUMIRA [Suspect]
     Indication: RHEUMATOID ARTHRITIS
     Route: 058
     Dates: start: 20090629, end: 20100416

REACTIONS (3)
  - CUTANEOUS TUBERCULOSIS [None]
  - NECROSIS [None]
  - PAIN [None]
